FAERS Safety Report 8996806 (Version 1)
Quarter: 2012Q4

REPORT INFORMATION
  Report Type: Spontaneous
  Country: CH (occurrence: None)
  Receive Date: 20121220
  Receipt Date: 20121220
  Transmission Date: 20130627
  Serious: Yes (Other)
  Sender: FDA-Public Use
  Company Number: 2012P1066684

PATIENT
  Age: 90 Year
  Sex: Female

DRUGS (5)
  1. DICLOFENAC [Suspect]
     Indication: JOINT PAIN
  2. ASPIRIN [Concomitant]
  3. ALLOPURINOL [Concomitant]
  4. TORASEMID [Concomitant]
  5. VALSARTAN [Concomitant]

REACTIONS (2)
  - Linear IgA disease [None]
  - Circulatory collapse [None]
